FAERS Safety Report 23599046 (Version 1)
Quarter: 2024Q1

REPORT INFORMATION
  Report Type: Spontaneous
  Country: ZA (occurrence: ZA)
  Receive Date: 20240306
  Receipt Date: 20240306
  Transmission Date: 20240409
  Serious: Yes (Hospitalization)
  Sender: FDA-Public Use
  Company Number: ZA-LUPIN PHARMACEUTICALS INC.-2024-01696

PATIENT

DRUGS (2)
  1. HYDROCHLOROTHIAZIDE\LISINOPRIL [Suspect]
     Active Substance: HYDROCHLOROTHIAZIDE\LISINOPRIL
     Indication: Hypertension
     Dosage: UNK UNK, QD (10/12.5 MG)
     Route: 048
     Dates: start: 202312
  2. TICARDA [Concomitant]
     Indication: Hypertension
     Dosage: UNK (80/12.5 MG DAILY)
     Route: 048
     Dates: start: 202401

REACTIONS (3)
  - Illness [Unknown]
  - Adverse event [Unknown]
  - Drug intolerance [Unknown]
